FAERS Safety Report 16048062 (Version 2)
Quarter: 2019Q1

REPORT INFORMATION
  Report Type: Spontaneous
  Country: US (occurrence: US)
  Receive Date: 20190307
  Receipt Date: 20190311
  Transmission Date: 20190418
  Serious: Yes (Death, Hospitalization)
  Sender: FDA-Public Use
  Company Number: US-009507513-1504USA010339

PATIENT
  Age: 70 Year
  Sex: Male

DRUGS (2)
  1. CUBICIN [Suspect]
     Active Substance: DAPTOMYCIN
     Indication: STAPHYLOCOCCAL BACTERAEMIA
     Dosage: 8 MG/KG, QD
     Route: 042
     Dates: start: 20070724, end: 20070731
  2. VANCOMYCIN [Concomitant]
     Active Substance: VANCOMYCIN
     Dosage: UNK

REACTIONS (6)
  - Hyperkalaemia [Fatal]
  - Asthenia [Fatal]
  - Blood creatine phosphokinase increased [Fatal]
  - Rhabdomyolysis [Fatal]
  - Pulseless electrical activity [Fatal]
  - Respiratory failure [Fatal]

NARRATIVE: CASE EVENT DATE: 200708
